FAERS Safety Report 25915463 (Version 1)
Quarter: 2025Q4

REPORT INFORMATION
  Report Type: Spontaneous
  Country: US (occurrence: US)
  Receive Date: 20251013
  Receipt Date: 20251013
  Transmission Date: 20260117
  Serious: No
  Sender: AXSOME THERAPEUTICS
  Company Number: US-AXS-AXS202509-001613

PATIENT
  Sex: Female

DRUGS (4)
  1. AUVELITY [Suspect]
     Active Substance: BUPROPION HYDROCHLORIDE\DEXTROMETHORPHAN HYDROBROMIDE
     Indication: Major depression
     Route: 050
  2. PROBIOTICS NOS [Concomitant]
     Active Substance: PROBIOTICS NOS
     Indication: Product used for unknown indication
     Route: 050
  3. VIBERZI [Concomitant]
     Active Substance: ELUXADOLINE
     Indication: Product used for unknown indication
     Route: 050
  4. UNSPECIFIED INGREDIENT [Concomitant]
     Active Substance: UNSPECIFIED INGREDIENT
     Indication: Product used for unknown indication
     Route: 050

REACTIONS (10)
  - Depersonalisation/derealisation disorder [Unknown]
  - Crying [Unknown]
  - Feeling abnormal [Unknown]
  - Abulia [Unknown]
  - Confusional state [Unknown]
  - Hypoaesthesia [Unknown]
  - Drug intolerance [Unknown]
  - Nausea [Unknown]
  - Dizziness [Unknown]
  - Therapeutic product effect variable [Unknown]
